APPROVED DRUG PRODUCT: LORAZEPAM
Active Ingredient: LORAZEPAM
Strength: 1MG
Dosage Form/Route: TABLET;ORAL
Application: A078203 | Product #002 | TE Code: AB
Applicant: LEADING PHARMA LLC
Approved: Jul 30, 2007 | RLD: No | RS: No | Type: RX